FAERS Safety Report 15731606 (Version 3)
Quarter: 2019Q2

REPORT INFORMATION
  Report Type: Report from Study
  Country: BR (occurrence: BR)
  Receive Date: 20181217
  Receipt Date: 20190417
  Transmission Date: 20190711
  Serious: Yes (Other)
  Sender: FDA-Public Use
  Company Number: PHHY2018BR183630

PATIENT
  Age: 86 Year
  Sex: Female

DRUGS (2)
  1. VITALUX PLUS OMEGA 03 (ALC) [Suspect]
     Active Substance: MINERALS\OMEGA-3 FATTY ACIDS\VITAMINS
     Indication: MACULOPATHY
  2. VITALUX PLUS OMEGA 03 (ALC) [Suspect]
     Active Substance: MINERALS\OMEGA-3 FATTY ACIDS\VITAMINS
     Indication: RETINAL DISORDER
     Dosage: 1 DF, QD
     Route: 048

REACTIONS (9)
  - Hypoacusis [Recovering/Resolving]
  - Foot fracture [Recovering/Resolving]
  - Mobility decreased [Recovering/Resolving]
  - Ligament sprain [Recovering/Resolving]
  - Blindness [Unknown]
  - Dysphagia [Recovering/Resolving]
  - Wrong technique in product usage process [Recovering/Resolving]
  - Central vision loss [Recovering/Resolving]
  - Retinal disorder [Unknown]

NARRATIVE: CASE EVENT DATE: 20181008
